FAERS Safety Report 16944513 (Version 1)
Quarter: 2019Q4

REPORT INFORMATION
  Report Type: Spontaneous
  Country: US (occurrence: US)
  Receive Date: 20191022
  Receipt Date: 20191022
  Transmission Date: 20200122
  Serious: No
  Sender: FDA-Public Use
  Company Number: US-GILEAD-2019-0433792

PATIENT
  Sex: Male

DRUGS (21)
  1. CEPHALEXIN [CEFALEXIN] [Concomitant]
     Active Substance: CEPHALEXIN
  2. LACTULOSE. [Concomitant]
     Active Substance: LACTULOSE
  3. EPCLUSA [Suspect]
     Active Substance: SOFOSBUVIR\VELPATASVIR
     Indication: CHRONIC HEPATITIS C
     Dosage: 1 DOSAGE FORM, QD
     Route: 048
     Dates: start: 201909
  4. MELOXICAM. [Concomitant]
     Active Substance: MELOXICAM
  5. LISINOPRIL COMP [Concomitant]
     Active Substance: HYDROCHLOROTHIAZIDE\LISINOPRIL
  6. ACETAMINOPHEN;HYDROCODONE [Concomitant]
     Active Substance: ACETAMINOPHEN\HYDROCODONE
  7. CLOTRIMAZOLE BETAMETHASONE VALERATE [Concomitant]
  8. POLYETHYLENE GLYCOL [Concomitant]
     Active Substance: POLYETHYLENE GLYCOLS
  9. HYDROCHLOROTHIAZIDE. [Concomitant]
     Active Substance: HYDROCHLOROTHIAZIDE
  10. DOK [Concomitant]
     Active Substance: DOCUSATE SODIUM
  11. OMEPRAZOLE SODIUM [Concomitant]
     Active Substance: OMEPRAZOLE SODIUM
  12. NITROGLYCERIN. [Concomitant]
     Active Substance: NITROGLYCERIN
  13. ASPIRIN [ACETYLSALICYLIC ACID] [Concomitant]
     Active Substance: ASPIRIN
  14. ONDANSETRON [Concomitant]
     Active Substance: ONDANSETRON
  15. NICOTINE. [Concomitant]
     Active Substance: NICOTINE
  16. METOPROLOL SUCCINATE. [Concomitant]
     Active Substance: METOPROLOL SUCCINATE
  17. CLONIDINE HYDROCHLORIDE. [Concomitant]
     Active Substance: CLONIDINE HYDROCHLORIDE
  18. ALBUTEROL [SALBUTAMOL] [Concomitant]
     Active Substance: ALBUTEROL
  19. IBUPROFEN. [Concomitant]
     Active Substance: IBUPROFEN
  20. FERROUS FUMARATE [Concomitant]
     Active Substance: FERROUS FUMARATE
  21. VITAMIN D [COLECALCIFEROL] [Concomitant]
     Active Substance: CHOLECALCIFEROL

REACTIONS (1)
  - Intentional product misuse [Unknown]
